FAERS Safety Report 6124022-8 (Version None)
Quarter: 2009Q1

REPORT INFORMATION
  Report Type: 
  Country: None (occurrence: None)
  Receive Date: 20090318
  Receipt Date: 20090318
  Transmission Date: 20090719
  Serious: No
  Sender: FDA-Public Use
  Company Number: None

PATIENT
  Sex: Female
  Weight: 64.55 kg

DRUGS (12)
  1. LISINOPRIL [Suspect]
     Dosage: 10MG TABLET 10 MG QAM ORAL
     Route: 048
     Dates: start: 20090210, end: 20090317
  2. ALENDRONATE SODIUM [Concomitant]
  3. AMOXICILLIN [Concomitant]
  4. ASPIRIN [Concomitant]
  5. ATENOLOL [Concomitant]
  6. ATROVENT HFA INHALER (IPRATROPUIM INHALER) [Concomitant]
  7. CALCIUM + D (CALCIUM CARBONATE / VIT D) [Concomitant]
  8. ERGOCALCIFEROL [Concomitant]
  9. FLONASE [Concomitant]
  10. INTAL INHALER (CROMOLYN SODIUM INHALER) [Concomitant]
  11. LIPITOR [Concomitant]
  12. QVAR INHALER 80 MCG/PUFF (BECLOMETHASONE DIPROPIONATE ORAL INHALATION [Concomitant]

REACTIONS (1)
  - COUGH [None]
